FAERS Safety Report 6500854-9 (Version None)
Quarter: 2009Q4

REPORT INFORMATION
  Report Type: 
  Country: None (occurrence: None)
  Receive Date: 20091216
  Receipt Date: 20090325
  Transmission Date: 20100525
  Serious: No
  Sender: FDA-Public Use
  Company Number: A0775398A

PATIENT
  Age: 73 Year
  Sex: Female

DRUGS (2)
  1. COMMIT [Suspect]
     Indication: SMOKING CESSATION THERAPY
     Dosage: 1LOZ THREE TIMES PER DAY
     Route: 002
     Dates: start: 20090301, end: 20090304
  2. NICOTINE [Suspect]
     Indication: SMOKING CESSATION THERAPY
     Dosage: 14MG PER DAY
     Route: 062
     Dates: start: 20090227

REACTIONS (2)
  - HEADACHE [None]
  - NICOTINE DEPENDENCE [None]
